FAERS Safety Report 10192678 (Version 2)
Quarter: 2014Q2

REPORT INFORMATION
  Report Type: Spontaneous
  Country: IT (occurrence: IT)
  Receive Date: 20140523
  Receipt Date: 20140523
  Transmission Date: 20141212
  Serious: Yes (Other)
  Sender: FDA-Public Use
  Company Number: IT-PFIZER INC-2014137625

PATIENT
  Age: 70 Year
  Sex: Female

DRUGS (1)
  1. QUINAPRIL HCL [Suspect]
     Indication: ESSENTIAL HYPERTENSION
     Dosage: UNK

REACTIONS (1)
  - Kaposi^s sarcoma [Recovered/Resolved]
